FAERS Safety Report 5302602-7 (Version None)
Quarter: 2007Q2

REPORT INFORMATION
  Report Type: 
  Country: None (occurrence: None)
  Receive Date: 20070419
  Receipt Date: 20070417
  Transmission Date: 20071010
  Serious: Yes (Hospitalization)
  Sender: FDA-Public Use
  Company Number: NL-BOEHRINGER INGELHEIM PHARMACEUTICALS, INC.-2005-NL-00200NL

PATIENT
  Sex: Male
  Weight: 53 kg

DRUGS (9)
  1. TIPRANAVIR + RITONAVIR CO-ADMIN [Suspect]
     Indication: HIV INFECTION
     Dosage: TIPR: 4X250MG  RIT: 4X100MG
     Route: 048
     Dates: start: 20031103
  2. TENOFOVIR [Concomitant]
     Indication: HIV INFECTION
     Route: 048
     Dates: start: 20030620
  3. NEVIRAPINE [Concomitant]
     Indication: HIV INFECTION
     Route: 048
     Dates: start: 20030704
  4. ENFUVIRTIDE [Concomitant]
     Indication: HIV INFECTION
     Dosage: STRENGTH: 90MG/ML  DAILY DOSE: 180MG/ML
     Route: 058
     Dates: start: 20030620
  5. LIPITOR [Concomitant]
     Route: 048
  6. REQUIP [Concomitant]
     Route: 048
  7. OMNIC [Concomitant]
     Route: 048
  8. FLUCONAZOLE [Concomitant]
     Route: 048
  9. OMEPRAZOLE [Concomitant]
     Route: 048

REACTIONS (1)
  - GALLBLADDER POLYP [None]
